FAERS Safety Report 7100193-1 (Version None)
Quarter: 2010Q4

REPORT INFORMATION
  Report Type: 
  Country: None (occurrence: None)
  Receive Date: 20101112
  Receipt Date: 20101110
  Transmission Date: 20110411
  Serious: Yes (Other)
  Sender: FDA-Public Use
  Company Number: JP-PFIZER INC-2010141690

PATIENT
  Age: 42 Year
  Sex: Male

DRUGS (1)
  1. CHAMPIX [Suspect]
     Dosage: UNK
     Route: 048
     Dates: start: 20100901, end: 20101013

REACTIONS (6)
  - ASTHENIA [None]
  - DYSARTHRIA [None]
  - HYPERHIDROSIS [None]
  - MENTAL IMPAIRMENT [None]
  - PALPITATIONS [None]
  - PYREXIA [None]
